FAERS Safety Report 4859566-X (Version None)
Quarter: 2005Q4

REPORT INFORMATION
  Report Type: 
  Country: None (occurrence: None)
  Receive Date: 20051219
  Receipt Date: 20050624
  Transmission Date: 20060501
  Serious: No
  Sender: FDA-Public Use
  Company Number: US-GLAXOSMITHKLINE-A0563999A

PATIENT
  Age: 45 Year
  Sex: Male

DRUGS (1)
  1. NICODERM CQ [Suspect]
     Dates: end: 20050624

REACTIONS (5)
  - ABNORMAL DREAMS [None]
  - CHEST PAIN [None]
  - INSOMNIA [None]
  - NAUSEA [None]
  - VOMITING [None]
